FAERS Safety Report 10617899 (Version 1)
Quarter: 2014Q4

REPORT INFORMATION
  Report Type: Report from Study
  Country: CN (occurrence: CN)
  Receive Date: 20141201
  Receipt Date: 20141201
  Transmission Date: 20150529
  Serious: Yes (Other)
  Sender: FDA-Public Use
  Company Number: CN-ASTRAZENECA-2014SE91525

PATIENT
  Sex: Female

DRUGS (5)
  1. LIDOCAINE WITH EPINEPHRINE [Suspect]
     Active Substance: EPINEPHRINE BITARTRATE\LIDOCAINE HYDROCHLORIDE
     Indication: ANALGESIC THERAPY
     Dosage: 1.5% LIDOCAINE WITH 1:200 000 EPINEPHRINE
     Route: 008
  2. ROPIVACAINE [Suspect]
     Active Substance: ROPIVACAINE
     Indication: ANALGESIC THERAPY
     Dosage: 10 ML ROPIVACAINE OF 0.125 % + 0.4 UG/ML SUFENTANIL IN TEST DOSE
     Route: 008
  3. ROPIVACAINE [Suspect]
     Active Substance: ROPIVACAINE
     Indication: ANALGESIC THERAPY
     Dosage: 0.08% ROPIVACAINE + 0.4 UG/ML SUFENTANILE FOR EPIDURAL SOLUTION
     Route: 008
  4. SUFENTANIL [Suspect]
     Active Substance: SUFENTANIL
     Indication: ANALGESIC THERAPY
     Dosage: 10 ML ROPIVACAINE OF 0.125 % + 0.4 UG/ML SUFENTANIL IN TEST DOSE
     Route: 008
  5. SUFENTANIL [Suspect]
     Active Substance: SUFENTANIL
     Indication: ANALGESIC THERAPY
     Dosage: 0.08% ROPIVACAINE + 0.4 UG/ML SUFENTANILE FOR EPIDURAL SOLUTION
     Route: 008

REACTIONS (1)
  - Pyrexia [Unknown]
